FAERS Safety Report 6984023-4 (Version None)
Quarter: 2010Q3

REPORT INFORMATION
  Report Type: 
  Country: None (occurrence: None)
  Receive Date: 20100915
  Receipt Date: 20090517
  Transmission Date: 20110219
  Serious: No
  Sender: FDA-Public Use
  Company Number: US-WYE-H09402009

PATIENT
  Sex: Female
  Weight: 72.64 kg

DRUGS (3)
  1. PRISTIQ [Suspect]
     Indication: MAJOR DEPRESSION
     Route: 048
     Dates: start: 20090301, end: 20090501
  2. PRISTIQ [Suspect]
     Route: 048
     Dates: start: 20090501
  3. SEROQUEL [Concomitant]

REACTIONS (1)
  - HYPERHIDROSIS [None]
